FAERS Safety Report 24380009 (Version 4)
Quarter: 2025Q3

REPORT INFORMATION
  Report Type: Report from Study
  Country: US (occurrence: US)
  Receive Date: 20240930
  Receipt Date: 20250731
  Transmission Date: 20251021
  Serious: No
  Sender: SUNOVION
  Company Number: US-SUMITOMO PHARMA SWITZERLAND GMBH-2024SPA002651

PATIENT

DRUGS (1)
  1. ORGOVYX [Suspect]
     Active Substance: RELUGOLIX
     Indication: Prostate cancer
     Dosage: 120 MG, QD
     Route: 048
     Dates: start: 20240625

REACTIONS (8)
  - Back disorder [Unknown]
  - Cough [Unknown]
  - Pain [Unknown]
  - Dizziness [Unknown]
  - Asthenia [Unknown]
  - Hot flush [Unknown]
  - Headache [Unknown]
  - Incorrect dose administered [Recovered/Resolved]
